FAERS Safety Report 9435667 (Version 2)
Quarter: 2013Q3

REPORT INFORMATION
  Report Type: Report from Study
  Country: US (occurrence: US)
  Receive Date: 20130801
  Receipt Date: 20130821
  Transmission Date: 20140515
  Serious: Yes (Hospitalization)
  Sender: FDA-Public Use
  Company Number: US-BAYER-2013-081322

PATIENT
  Age: 48 Year
  Sex: Male

DRUGS (6)
  1. ALPHARADIN [Suspect]
     Indication: HORMONE-REFRACTORY PROSTATE CANCER
     Dosage: 4636 KBQ
     Route: 042
     Dates: start: 20130507, end: 20130507
  2. ALPHARADIN [Suspect]
     Indication: HORMONE-REFRACTORY PROSTATE CANCER
     Dosage: 4681 KBQ
     Route: 042
     Dates: start: 20130607, end: 20130607
  3. METHADONE [Concomitant]
     Indication: METASTATIC PAIN
     Dosage: 50 MG DAILY
     Route: 048
     Dates: start: 20121030
  4. METHADONE [Concomitant]
     Indication: METASTATIC PAIN
     Dosage: 100 MG DAILY
     Route: 048
  5. XGEVA [Concomitant]
     Indication: PROPHYLAXIS
     Dosage: 120 MG ONCE 4 WEEKS
     Route: 058
     Dates: start: 20121110
  6. DEGARELIX [Concomitant]
     Indication: PROSTATE CANCER
     Dosage: 120 MG ONCE 4 WEEKS
     Route: 058
     Dates: start: 20130412

REACTIONS (1)
  - Toxic encephalopathy [Recovered/Resolved]
